FAERS Safety Report 16488753 (Version 2)
Quarter: 2019Q3

REPORT INFORMATION
  Report Type: Spontaneous
  Country: US (occurrence: US)
  Receive Date: 20190627
  Receipt Date: 20190820
  Transmission Date: 20191004
  Serious: Yes (Other)
  Sender: FDA-Public Use
  Company Number: US-BIOGEN-2019BI00753668

PATIENT
  Age: 42 Year
  Sex: Female

DRUGS (2)
  1. TYSABRI [Suspect]
     Active Substance: NATALIZUMAB
     Indication: MULTIPLE SCLEROSIS
     Route: 065
     Dates: start: 20190412
  2. TYSABRI [Suspect]
     Active Substance: NATALIZUMAB
     Route: 065
     Dates: start: 20190412, end: 20190619

REACTIONS (7)
  - Pulmonary eosinophilia [Unknown]
  - Pain [Unknown]
  - Lung infection [Not Recovered/Not Resolved]
  - Pulmonary granuloma [Not Recovered/Not Resolved]
  - Pneumonitis [Not Recovered/Not Resolved]
  - Imaging procedure abnormal [Unknown]
  - Cough [Unknown]

NARRATIVE: CASE EVENT DATE: 201905
